FAERS Safety Report 6298808-3 (Version None)
Quarter: 2009Q3

REPORT INFORMATION
  Report Type: 
  Country: None (occurrence: None)
  Receive Date: 20090806
  Receipt Date: 20090711
  Transmission Date: 20100115
  Serious: Yes (Disabling, Other)
  Sender: FDA-Public Use
  Company Number: AU-PFIZER INC-2009218513

PATIENT
  Age: 46 Year

DRUGS (2)
  1. CHAMPIX [Suspect]
     Indication: SMOKING CESSATION THERAPY
     Dosage: 1 MG, 2X/DAY
     Route: 048
     Dates: start: 20090128, end: 20090204
  2. ACETAMINOPHEN W/ CODEINE [Concomitant]
     Indication: BACK DISORDER

REACTIONS (6)
  - CHOKING SENSATION [None]
  - DRY MOUTH [None]
  - LOWER RESPIRATORY TRACT INFECTION [None]
  - MOOD ALTERED [None]
  - RESTLESSNESS [None]
  - TREMOR [None]
